FAERS Safety Report 7995715-2 (Version None)
Quarter: 2011Q4

REPORT INFORMATION
  Report Type: 
  Country: None (occurrence: None)
  Receive Date: 20111220
  Receipt Date: 20111219
  Transmission Date: 20120403
  Serious: Yes (Hospitalization)
  Sender: FDA-Public Use
  Company Number: IT-SANOFI-AVENTIS-2011SA079863

PATIENT
  Age: 79 Year
  Sex: Male

DRUGS (3)
  1. PLAVIX [Suspect]
     Route: 048
     Dates: start: 20111004, end: 20111025
  2. PANTOPRAZOLE [Concomitant]
     Route: 048
     Dates: start: 20111004, end: 20111025
  3. ASPIRIN [Suspect]
     Route: 048
     Dates: start: 20111004, end: 20111025

REACTIONS (2)
  - ANAEMIA [None]
  - RECTAL HAEMORRHAGE [None]
